FAERS Safety Report 4640338-6 (Version None)
Quarter: 2005Q2

REPORT INFORMATION
  Report Type: 
  Country: None (occurrence: None)
  Receive Date: 20050420
  Receipt Date: 20050411
  Transmission Date: 20051028
  Serious: Yes (Other)
  Sender: FDA-Public Use
  Company Number: PHFR2005GB01480

PATIENT
  Sex: Female

DRUGS (3)
  1. TEGRETOL [Suspect]
     Indication: CONVULSION
     Dosage: 400 MG, QID
     Route: 048
  2. CLOBAZAM [Concomitant]
  3. KEPPRA [Concomitant]

REACTIONS (2)
  - INTESTINAL OBSTRUCTION [None]
  - MUSCLE TWITCHING [None]
